FAERS Safety Report 23207140 (Version 1)
Quarter: 2023Q4

REPORT INFORMATION
  Report Type: Spontaneous
  Country: US (occurrence: US)
  Receive Date: 20231120
  Receipt Date: 20231120
  Transmission Date: 20240110
  Serious: Yes (Other)
  Sender: FDA-Public Use
  Company Number: US-SUNOVION-2023SUN001248

PATIENT

DRUGS (2)
  1. APTIOM [Suspect]
     Active Substance: ESLICARBAZEPINE ACETATE
     Dosage: 400 MG IN THE MORNING, 2 800 MGS AT NIGHT, BID
     Route: 048
  2. XCOPRI [Concomitant]
     Active Substance: CENOBAMATE
     Dosage: UNK
     Route: 065

REACTIONS (4)
  - Seizure [Unknown]
  - Inappropriate schedule of product administration [Unknown]
  - Prescribed overdose [Unknown]
  - Therapy interrupted [Unknown]
